FAERS Safety Report 6478225-3 (Version None)
Quarter: 2009Q4

REPORT INFORMATION
  Report Type: 
  Country: None (occurrence: None)
  Receive Date: 20091202
  Receipt Date: 20091119
  Transmission Date: 20100525
  Serious: Yes (Other)
  Sender: FDA-Public Use
  Company Number: ADR51522009

PATIENT
  Sex: Female

DRUGS (2)
  1. RISPERIDONE [Suspect]
     Dosage: 2 MG ORAL
     Route: 048
  2. RISPERDAL CONSTA [Concomitant]

REACTIONS (3)
  - DRUG INEFFECTIVE [None]
  - FAT TISSUE INCREASED [None]
  - HALLUCINATION, AUDITORY [None]
